FAERS Safety Report 16409622 (Version 1)
Quarter: 2019Q2

REPORT INFORMATION
  Report Type: Spontaneous
  Country: TR (occurrence: TR)
  Receive Date: 20190610
  Receipt Date: 20190610
  Transmission Date: 20190711
  Serious: Yes (Other)
  Sender: FDA-Public Use
  Company Number: TR-JUBILANT CADISTA PHARMACEUTICALS-2019JUB00232

PATIENT
  Age: 59 Year
  Sex: Male

DRUGS (1)
  1. VALSARTAN AND SACUBITRIL [Suspect]
     Active Substance: SACUBITRIL\VALSARTAN
     Indication: CARDIAC FAILURE CHRONIC
     Dosage: 50 MG, 2X/DAY
     Route: 065

REACTIONS (2)
  - Syncope [Recovered/Resolved]
  - Ventricular arrhythmia [Recovered/Resolved]
